FAERS Safety Report 5880626-9 (Version None)
Quarter: 2008Q3

REPORT INFORMATION
  Report Type: 
  Country: None (occurrence: None)
  Receive Date: 20080912
  Receipt Date: 20080902
  Transmission Date: 20090109
  Serious: Yes (Hospitalization)
  Sender: FDA-Public Use
  Company Number: JP-SANOFI-SYNTHELABO-A01200808534

PATIENT
  Sex: Male

DRUGS (11)
  1. NITRAZEPAM [Concomitant]
     Indication: DEPRESSION
     Route: 048
  2. AMLODIPINE BESYLATE [Concomitant]
     Indication: HYPERTENSION
     Route: 048
  3. TENORMIN [Concomitant]
     Indication: HYPERTENSION
     Route: 048
  4. NU-LOTAN [Concomitant]
     Indication: HYPERTENSION
     Route: 048
  5. NICHISTATE [Concomitant]
     Indication: CEREBRAL INFARCTION
     Route: 048
  6. PAXIL [Concomitant]
     Indication: DEPRESSION
     Route: 048
  7. PAXIL [Concomitant]
     Route: 048
  8. TETRAMIDE [Concomitant]
     Indication: HYPERTENSION
     Route: 048
  9. SEPAZON [Concomitant]
     Indication: DEPRESSION
     Route: 048
  10. ALCOHOL [Concomitant]
     Indication: ALCOHOL USE
     Dosage: UNK
     Route: 048
  11. MYSLEE [Suspect]
     Indication: DEPRESSION
     Route: 048

REACTIONS (2)
  - ALTERED STATE OF CONSCIOUSNESS [None]
  - QUADRIPLEGIA [None]
